FAERS Safety Report 13652315 (Version 3)
Quarter: 2021Q4

REPORT INFORMATION
  Report Type: Spontaneous
  Country: FR (occurrence: FR)
  Receive Date: 20170614
  Receipt Date: 20211215
  Transmission Date: 20220303
  Serious: Yes (Congenital Anomaly, Other)
  Sender: FDA-Public Use
  Company Number: FR-ABBVIE-16P-056-1819060-00

PATIENT
  Age: 2 Month
  Sex: Male

DRUGS (1)
  1. VALPROATE SODIUM [Suspect]
     Active Substance: VALPROATE SODIUM
     Indication: Maternal exposure timing unspecified
     Route: 064

REACTIONS (23)
  - Foetal anticonvulsant syndrome [Not Recovered/Not Resolved]
  - Autism spectrum disorder [Not Recovered/Not Resolved]
  - Intellectual disability [Unknown]
  - Dysmorphism [Not Recovered/Not Resolved]
  - Psychomotor skills impaired [Unknown]
  - Hypertonia [Unknown]
  - Language disorder [Unknown]
  - Learning disability [Unknown]
  - Behaviour disorder [Unknown]
  - Disorganised speech [Unknown]
  - Disturbance in attention [Unknown]
  - Gastrooesophageal reflux disease [Unknown]
  - Oropharyngeal discomfort [Unknown]
  - Ear disorder [Unknown]
  - Nasal disorder [Unknown]
  - Visual impairment [Unknown]
  - Osteochondrosis [Unknown]
  - Encopresis [Unknown]
  - Bradykinesia [Unknown]
  - Cardiac murmur [Unknown]
  - Fatigue [Unknown]
  - Rash macular [Unknown]
  - Foetal exposure during pregnancy [Unknown]

NARRATIVE: CASE EVENT DATE: 20050701
